FAERS Safety Report 14470190 (Version 1)
Quarter: 2018Q1

REPORT INFORMATION
  Report Type: Other
  Country: US (occurrence: US)
  Receive Date: 20180131
  Receipt Date: 20180131
  Transmission Date: 20180509
  Serious: No
  Sender: FDA-Public Use
  Company Number: US-ACORDA-ACO_141388_2017

PATIENT
  Age: 65 Year
  Sex: Female

DRUGS (3)
  1. GLATOPA [Concomitant]
     Active Substance: GLATIRAMER ACETATE
     Indication: PROGRESSIVE RELAPSING MULTIPLE SCLEROSIS
     Dosage: 20 MG, WEEKLY
     Route: 058
  2. AMPYRA [Suspect]
     Active Substance: DALFAMPRIDINE
     Indication: MULTIPLE SCLEROSIS
     Dosage: 10 MG, Q 12 HRS
     Route: 048
     Dates: start: 20160601
  3. AMPYRA [Suspect]
     Active Substance: DALFAMPRIDINE
     Dosage: 10 MG, Q 12 HRS
     Route: 048
     Dates: start: 20160601

REACTIONS (6)
  - Laboratory test abnormal [Unknown]
  - Syncope [Unknown]
  - Fall [Unknown]
  - Pain in extremity [Unknown]
  - Blood glucose decreased [Unknown]
  - Costochondritis [Unknown]

NARRATIVE: CASE EVENT DATE: 20171005
